FAERS Safety Report 6112080-6 (Version None)
Quarter: 2009Q1

REPORT INFORMATION
  Report Type: 
  Country: None (occurrence: None)
  Receive Date: 20090311
  Receipt Date: 20090303
  Transmission Date: 20090719
  Serious: Yes (Death, Hospitalization)
  Sender: FDA-Public Use
  Company Number: FR-PFIZER INC-2009178286

PATIENT

DRUGS (11)
  1. MARAVIROC [Suspect]
     Indication: HIV INFECTION
     Dosage: 150 MG, 2X/DAY
     Route: 048
     Dates: start: 20080317, end: 20081215
  2. CELSENTRI [Suspect]
     Dosage: UNK
     Route: 048
     Dates: start: 20081215
  3. DARUNAVIR [Concomitant]
     Route: 048
     Dates: start: 20080317
  4. RALTEGRAVIR [Concomitant]
     Route: 048
     Dates: start: 20080317
  5. RITONAVIR [Concomitant]
     Route: 048
     Dates: start: 20060612
  6. ETRAVIRINE [Concomitant]
     Route: 048
     Dates: start: 20080317
  7. MALOCIDE [Concomitant]
     Route: 048
     Dates: start: 20080318
  8. ADIAZINE [Concomitant]
     Route: 048
     Dates: start: 20080318
  9. LEDERFOLIN [Concomitant]
     Route: 048
     Dates: start: 20080318
  10. ZELITREX [Concomitant]
     Route: 048
     Dates: start: 20080527
  11. PENTAMIDINE ISETHIONATE [Concomitant]
     Dates: start: 20070918

REACTIONS (2)
  - DIARRHOEA [None]
  - RENAL FAILURE [None]
